FAERS Safety Report 7427680-0 (Version None)
Quarter: 2011Q1

REPORT INFORMATION
  Report Type: 
  Country: None (occurrence: None)
  Receive Date: 20110329
  Receipt Date: 20110315
  Transmission Date: 20110831
  Serious: Yes (Hospitalization)
  Sender: FDA-Public Use
  Company Number: 2011PROUSA00243

PATIENT
  Age: 86 Year
  Sex: Male
  Weight: 93 kg

DRUGS (6)
  1. ALLEGRA [Concomitant]
  2. DIOVAN [Concomitant]
  3. LOPID [Concomitant]
  4. PROVENGE [Suspect]
     Indication: PROSTATE CANCER METASTATIC
     Dosage: 250 ML, SINGLE, INTRAVENOUS
     Route: 042
     Dates: start: 20110224, end: 20110224
  5. LIDOCAINE /00033402/ (LIDOCAINE HYDROCHLORIDE) [Concomitant]
  6. ASPIRIN [Concomitant]

REACTIONS (2)
  - SPINAL CORD COMPRESSION [None]
  - MALAISE [None]
